FAERS Safety Report 11393088 (Version 1)
Quarter: 2015Q3

REPORT INFORMATION
  Report Type: Spontaneous
  Country: US (occurrence: US)
  Receive Date: 20150818
  Receipt Date: 20150818
  Transmission Date: 20151125
  Serious: Yes (Hospitalization, Other)
  Sender: FDA-Public Use
  Company Number: US-GLAXOSMITHKLINE-US2015118101

PATIENT
  Age: 61 Year
  Sex: Female

DRUGS (7)
  1. ALPRAZOLAM. [Concomitant]
     Active Substance: ALPRAZOLAM
  2. OXYCODONE + APAP [Concomitant]
  3. HYDROCODONE [Concomitant]
     Active Substance: HYDROCODONE
     Indication: COUGH
  4. VENTOLIN HFA [Suspect]
     Active Substance: ALBUTEROL SULFATE
     Dosage: 4 PUFF(S), PRN
     Route: 055
  5. ALBUTEROL NEBULIZER [Concomitant]
     Active Substance: ALBUTEROL
  6. LOSARTAN. [Concomitant]
     Active Substance: LOSARTAN
  7. VENTOLIN HFA [Suspect]
     Active Substance: ALBUTEROL SULFATE
     Indication: CHRONIC OBSTRUCTIVE PULMONARY DISEASE
     Dosage: UNK

REACTIONS (4)
  - Lung neoplasm malignant [Recovering/Resolving]
  - Drug ineffective [Unknown]
  - Chronic obstructive pulmonary disease [Unknown]
  - Overdose [Unknown]

NARRATIVE: CASE EVENT DATE: 201202
